FAERS Safety Report 10366718 (Version 1)
Quarter: 2014Q3

REPORT INFORMATION
  Report Type: Spontaneous
  Country: US (occurrence: US)
  Receive Date: 20140806
  Receipt Date: 20140806
  Transmission Date: 20150326
  Serious: No
  Sender: FDA-Public Use
  Company Number: US-009507513-1408USA001802

PATIENT
  Sex: Female

DRUGS (7)
  1. VICTRELIS [Suspect]
     Active Substance: BOCEPREVIR
     Indication: HEPATITIS C
     Dosage: 4 TABLETS (200 MG, TID)
     Route: 065
  2. COPEGUS [Suspect]
     Active Substance: RIBAVIRIN
     Indication: HEPATITIS C
     Dosage: 400 MG, BID
     Route: 048
  3. WELLBUTRIN [Concomitant]
     Active Substance: BUPROPION HYDROCHLORIDE
  4. PEGASYS [Suspect]
     Active Substance: PEGINTERFERON ALFA-2A
     Indication: HEPATITIS C
     Dosage: 180 MICROGRAM, QW
     Route: 058
  5. COPEGUS [Suspect]
     Active Substance: RIBAVIRIN
     Dosage: 600 MG, BID
     Route: 048
  6. NEURONTIN [Concomitant]
     Active Substance: GABAPENTIN
  7. SUBOXONE [Concomitant]
     Active Substance: BUPRENORPHINE HYDROCHLORIDE\NALOXONE HYDROCHLORIDE

REACTIONS (1)
  - Therapeutic response decreased [Unknown]

NARRATIVE: CASE EVENT DATE: 2008
